FAERS Safety Report 7242672-2 (Version None)
Quarter: 2011Q1

REPORT INFORMATION
  Report Type: 
  Country: None (occurrence: None)
  Receive Date: 20110125
  Receipt Date: 20110119
  Transmission Date: 20110831
  Serious: Yes (Death)
  Sender: FDA-Public Use
  Company Number: DE-SHIRE-SPV1-2011-00062

PATIENT
  Sex: Male
  Weight: 38 kg

DRUGS (2)
  1. IDURSULFASE [Suspect]
     Indication: MUCOPOLYSACCHARIDOSIS II
     Dosage: 18 MG, 1X/WEEK
     Route: 041
     Dates: start: 20060906
  2. IDURSULFASE [Suspect]
     Dosage: 24 MG, 1X/WEEK
     Route: 041
     Dates: start: 20080910

REACTIONS (1)
  - DEATH [None]
